FAERS Safety Report 8458220-5 (Version None)
Quarter: 2012Q2

REPORT INFORMATION
  Report Type: 
  Country: None (occurrence: None)
  Receive Date: 20120622
  Receipt Date: 20120614
  Transmission Date: 20120825
  Serious: Yes (Other)
  Sender: FDA-Public Use
  Company Number: US-US-EMD SERONO, INC.-7141068

PATIENT
  Sex: Male
  Weight: 73 kg

DRUGS (2)
  1. HIV MEDICATIONS [Concomitant]
     Indication: HIV INFECTION
  2. EGRIFTA [Suspect]
     Indication: LIPODYSTROPHY ACQUIRED
     Dates: start: 20110101

REACTIONS (5)
  - MUSCLE SPASMS [None]
  - BOWEL MOVEMENT IRREGULARITY [None]
  - PAIN [None]
  - PROSTATE INFECTION [None]
  - ABDOMINAL PAIN UPPER [None]
